FAERS Safety Report 7149615-0 (Version None)
Quarter: 2010Q4

REPORT INFORMATION
  Report Type: 
  Country: None (occurrence: None)
  Receive Date: 20101209
  Receipt Date: 20101207
  Transmission Date: 20110411
  Serious: Yes (Hospitalization, Other)
  Sender: FDA-Public Use
  Company Number: FR-ABBOTT-10P-056-0687877-00

PATIENT
  Sex: Female

DRUGS (15)
  1. ZECLAR [Suspect]
     Indication: GASTRODUODENAL ULCER
     Dosage: 2-500MG TABS DAILY
     Route: 048
     Dates: start: 20100708, end: 20100725
  2. ZECLAR [Suspect]
     Indication: HELICOBACTER GASTRITIS
  3. OROKEN [Suspect]
     Indication: HELICOBACTER GASTRITIS
     Dosage: 2-200MG TABS DAILY
     Route: 048
     Dates: start: 20100708, end: 20100715
  4. OROKEN [Suspect]
     Indication: GASTRODUODENAL ULCER
  5. COLCHIMAX [Suspect]
     Indication: PRODUCT USED FOR UNKNOWN INDICATION
     Dates: start: 20100610, end: 20100710
  6. AMAREL [Concomitant]
     Indication: PRODUCT USED FOR UNKNOWN INDICATION
     Dosage: 3 DOSAGE FORMS DAILY
  7. NOVONORM [Concomitant]
     Indication: PRODUCT USED FOR UNKNOWN INDICATION
     Dosage: FORM STRENGTH: 2MG-2 IN 1 DAY
  8. METFORMIN HCL [Concomitant]
     Indication: PRODUCT USED FOR UNKNOWN INDICATION
     Dosage: FORM STRENGTH: 850MG-3 IN 1 DAY
  9. PRETERAX [Concomitant]
     Indication: PRODUCT USED FOR UNKNOWN INDICATION
     Dosage: 1 DOSAGE FORM DAILY
  10. LAROXYL [Concomitant]
     Indication: PRODUCT USED FOR UNKNOWN INDICATION
  11. LEVOTHYROX [Concomitant]
     Indication: PRODUCT USED FOR UNKNOWN INDICATION
  12. BISOPROLOL [Concomitant]
     Indication: PRODUCT USED FOR UNKNOWN INDICATION
  13. TRIMETAZIDINE [Concomitant]
     Indication: PRODUCT USED FOR UNKNOWN INDICATION
     Dosage: FORM STRENGTH: 20MG 3 IN 1 DAY
  14. LANSOPRAZOLE [Concomitant]
     Indication: GASTRODUODENAL ULCER
     Dates: start: 20100708
  15. LANSOPRAZOLE [Concomitant]
     Indication: HELICOBACTER GASTRITIS

REACTIONS (16)
  - ABDOMINAL DISTENSION [None]
  - CHOLELITHIASIS [None]
  - CONSTIPATION [None]
  - DECREASED APPETITE [None]
  - DEHYDRATION [None]
  - DIARRHOEA [None]
  - DRUG INEFFECTIVE [None]
  - GASTROINTESTINAL DISORDER [None]
  - GASTROINTESTINAL SOUNDS ABNORMAL [None]
  - HEPATOMEGALY [None]
  - HYPONATRAEMIA [None]
  - ILL-DEFINED DISORDER [None]
  - INAPPROPRIATE ANTIDIURETIC HORMONE SECRETION [None]
  - NAUSEA [None]
  - PARANEOPLASTIC SYNDROME [None]
  - TONGUE DISORDER [None]
